FAERS Safety Report 8828894 (Version 1)
Quarter: 2012Q4

REPORT INFORMATION
  Report Type: Report from Study
  Country: GB (occurrence: GB)
  Receive Date: 20121008
  Receipt Date: 20121008
  Transmission Date: 20130627
  Serious: Yes (Other)
  Sender: FDA-Public Use
  Company Number: GB-PFIZER INC-2012243668

PATIENT
  Age: 53 Year
  Sex: Male
  Weight: 75 kg

DRUGS (8)
  1. DOXORUBICIN [Suspect]
     Indication: DIFFUSE LARGE B-CELL LYMPHOMA
     Dosage: 94 mg, every 3 weeks
     Route: 042
     Dates: start: 20111028
  2. RITUXIMAB [Suspect]
     Indication: DIFFUSE LARGE B-CELL LYMPHOMA
     Dosage: 710 mg, every 3 weeks
     Route: 042
     Dates: start: 20111027
  3. CYCLOPHOSPHAMIDE [Suspect]
     Indication: DIFFUSE LARGE B-CELL LYMPHOMA
     Dosage: 1400 mg, every 3 weeks
     Route: 042
     Dates: start: 20111028
  4. VINCRISTINE SULFATE [Suspect]
     Indication: DIFFUSE LARGE B-CELL LYMPHOMA
     Dosage: 2 mg, every 3 weeks
     Route: 042
     Dates: start: 20111028
  5. PREDNISONE [Suspect]
     Indication: DIFFUSE LARGE B-CELL LYMPHOMA
     Dosage: 100 mg, every 3 weeks
     Route: 048
     Dates: start: 20111028
  6. OMEPRAZOLE [Concomitant]
     Indication: EPIGASTRIC DISCOMFORT
     Dosage: UNK
     Dates: start: 20120120
  7. FLUCONAZOLE [Concomitant]
     Dosage: UNK
     Dates: start: 20111216
  8. ENOXAPARIN SODIUM [Concomitant]
     Indication: OEDEMA PERIPHERAL
     Dosage: UNK
     Dates: start: 20111128

REACTIONS (1)
  - Venous thrombosis [Not Recovered/Not Resolved]
